FAERS Safety Report 8174552-2 (Version None)
Quarter: 2012Q1

REPORT INFORMATION
  Report Type: 
  Country: None (occurrence: None)
  Receive Date: 20120229
  Receipt Date: 20120221
  Transmission Date: 20120608
  Serious: Yes (Other)
  Sender: FDA-Public Use
  Company Number: ES-PFIZER INC-2012046207

PATIENT
  Age: 63 Year
  Sex: Male
  Weight: 62 kg

DRUGS (3)
  1. LINEZOLID [Suspect]
     Dosage: 600 MG, 2X/DAY
     Dates: start: 20100825, end: 20100901
  2. VANCOMYCIN [Suspect]
     Dosage: 1000 MG, 2X/DAY
     Dates: start: 20100819, end: 20100825
  3. FUROSEMIDE [Suspect]

REACTIONS (1)
  - NEPHROPATHY TOXIC [None]
